FAERS Safety Report 9708211 (Version 1)
Quarter: 2013Q4

REPORT INFORMATION
  Report Type: Spontaneous
  Country: US (occurrence: US)
  Receive Date: 20131125
  Receipt Date: 20131125
  Transmission Date: 20140711
  Serious: No
  Sender: FDA-Public Use
  Company Number: US-TEVA-447028USA

PATIENT
  Age: 18 Year
  Sex: Female
  Weight: 53.12 kg

DRUGS (3)
  1. PLAN B ONE-STEP [Suspect]
     Indication: POST COITAL CONTRACEPTION
     Dosage: 1.5 MILLIGRAM DAILY;
     Route: 048
     Dates: start: 20131114, end: 20131114
  2. ZOLOFT [Concomitant]
     Indication: DEPRESSION
  3. METOPROLOL [Concomitant]
     Indication: AUTONOMIC NERVOUS SYSTEM IMBALANCE

REACTIONS (1)
  - Menstruation irregular [Not Recovered/Not Resolved]
